FAERS Safety Report 6715183-8 (Version None)
Quarter: 2010Q2

REPORT INFORMATION
  Report Type: 
  Country: None (occurrence: None)
  Receive Date: 20100507
  Receipt Date: 20100503
  Transmission Date: 20101027
  Serious: Yes (Death, Hospitalization, Other)
  Sender: FDA-Public Use
  Company Number: US-BRISTOL-MYERS SQUIBB COMPANY-14955942

PATIENT
  Age: 41 Year
  Sex: Female
  Weight: 72 kg

DRUGS (10)
  1. DASATINIB [Suspect]
     Indication: GLIOBLASTOMA MULTIFORME
     Route: 048
     Dates: start: 20091209, end: 20100113
  2. ERLOTINIB HYDROCHLORIDE [Suspect]
     Indication: GLIOBLASTOMA MULTIFORME
     Route: 048
     Dates: start: 20091209, end: 20100113
  3. DECADRON [Concomitant]
     Route: 048
  4. IMODIUM ADVANCED [Concomitant]
     Route: 048
  5. LEVETIRACETAM [Concomitant]
     Route: 048
  6. LOVENOX [Concomitant]
     Route: 058
  7. LOVENOX [Concomitant]
     Route: 058
  8. ONDANSETRON [Concomitant]
     Dosage: TABLET
     Route: 048
  9. TRILEPTAL [Concomitant]
     Route: 048
  10. ZANTAC [Concomitant]
     Route: 048

REACTIONS (7)
  - ALANINE AMINOTRANSFERASE INCREASED [None]
  - ASPARTATE AMINOTRANSFERASE INCREASED [None]
  - BLOOD CREATININE INCREASED [None]
  - CONVULSION [None]
  - HAEMOGLOBIN DECREASED [None]
  - HYPERKALAEMIA [None]
  - MALIGNANT NEOPLASM PROGRESSION [None]
